FAERS Safety Report 14026185 (Version 1)
Quarter: 2017Q3

REPORT INFORMATION
  Report Type: Spontaneous
  Country: US (occurrence: US)
  Receive Date: 20170929
  Receipt Date: 20170929
  Transmission Date: 20171128
  Serious: Yes (Other)
  Sender: FDA-Public Use
  Company Number: US-CUMBERLAND PHARMACEUTICALS INC.-2028290

PATIENT
  Age: 60 Year
  Sex: Male

DRUGS (1)
  1. CALDOLOR [Suspect]
     Active Substance: IBUPROFEN
     Indication: PAIN
     Route: 042

REACTIONS (1)
  - Renal failure [Recovered/Resolved]

NARRATIVE: CASE EVENT DATE: 20170920
